FAERS Safety Report 6270373-6 (Version None)
Quarter: 2009Q3

REPORT INFORMATION
  Report Type: 
  Country: None (occurrence: None)
  Receive Date: 20090716
  Receipt Date: 20090714
  Transmission Date: 20100115
  Serious: Yes (Hospitalization)
  Sender: FDA-Public Use
  Company Number: B0584193A

PATIENT
  Age: 9 Year
  Sex: Male

DRUGS (3)
  1. AUGMENTIN '125' [Suspect]
     Indication: ACUTE TONSILLITIS
     Route: 048
     Dates: start: 20090408, end: 20090415
  2. FLUIDIN MUCOLITICO [Suspect]
     Indication: ACUTE TONSILLITIS
     Dosage: 100MG TWICE PER DAY
     Route: 048
     Dates: start: 20090408, end: 20090415
  3. DALSY [Suspect]
     Indication: ACUTE TONSILLITIS
     Dosage: 100MG TWICE PER DAY
     Route: 048
     Dates: start: 20090408, end: 20090415

REACTIONS (1)
  - WARM TYPE HAEMOLYTIC ANAEMIA [None]
